FAERS Safety Report 11326307 (Version 1)
Quarter: 2015Q3

REPORT INFORMATION
  Report Type: Spontaneous
  Country: US (occurrence: US)
  Receive Date: 20150731
  Receipt Date: 20150731
  Transmission Date: 20151125
  Serious: Yes (Hospitalization)
  Sender: FDA-Public Use
  Company Number: US-INCYTE CORPORATION-2015IN003581

PATIENT
  Age: 84 Year
  Sex: Female

DRUGS (2)
  1. JAKAFI [Suspect]
     Active Substance: RUXOLITINIB
     Indication: POLYCYTHAEMIA VERA
     Dosage: 15 MG, BID
     Route: 048
     Dates: start: 20150601, end: 20150714
  2. AMPICILLIN [Suspect]
     Active Substance: AMPICILLIN
     Indication: TOOTH ABSCESS
     Dosage: UNK
     Dates: start: 20150707

REACTIONS (2)
  - Epistaxis [Unknown]
  - Tooth abscess [Unknown]

NARRATIVE: CASE EVENT DATE: 20150707
